FAERS Safety Report 23448167 (Version 3)
Quarter: 2024Q1

REPORT INFORMATION
  Report Type: Other
  Country: US (occurrence: US)
  Receive Date: 20240126
  Receipt Date: 20240313
  Transmission Date: 20240410
  Serious: No
  Sender: FDA-Public Use
  Company Number: US-TRAVERE-2023TVT00898

PATIENT
  Age: 26 Year
  Sex: Female

DRUGS (2)
  1. FILSPARI [Suspect]
     Active Substance: SPARSENTAN
     Indication: IgA nephropathy
     Route: 048
  2. LISINOPRIL [Suspect]
     Active Substance: LISINOPRIL

REACTIONS (7)
  - Intermenstrual bleeding [Unknown]
  - Glomerular filtration rate decreased [Unknown]
  - Protein total decreased [Unknown]
  - Menstruation irregular [Unknown]
  - Dysmenorrhoea [Unknown]
  - Proteinuria [Unknown]
  - Hypotension [Unknown]

NARRATIVE: CASE EVENT DATE: 20240101
